FAERS Safety Report 5847138-X (Version None)
Quarter: 2008Q3

REPORT INFORMATION
  Report Type: 
  Country: None (occurrence: None)
  Receive Date: 20080815
  Receipt Date: 20080806
  Transmission Date: 20090109
  Serious: Yes (Other)
  Sender: FDA-Public Use
  Company Number: PHEH2008US06872

PATIENT
  Sex: Female

DRUGS (9)
  1. LOTREL [Suspect]
     Indication: HYPERTENSION
     Dosage: 5 / 40 MG, QD
     Route: 048
     Dates: start: 20060901
  2. LOTREL [Suspect]
     Dosage: 10 / 40 MG, QD
     Route: 048
     Dates: start: 20060101, end: 20060101
  3. LOTREL [Suspect]
     Dosage: 5 / 40 MG, QD
     Route: 048
     Dates: start: 20060101
  4. LOTREL [Suspect]
     Dates: start: 20070101
  5. LOTREL [Suspect]
     Dosage: 2 TABLETS OF 5 / 10 MG, QD
     Route: 048
  6. NOVOLOG [Concomitant]
     Indication: DIABETES MELLITUS
  7. LANTUS [Concomitant]
     Indication: DIABETES MELLITUS
  8. ATIVAN [Concomitant]
     Indication: PANIC ATTACK
  9. LORTAB [Concomitant]
     Dosage: 5/40 MG, QD
     Route: 048
     Dates: end: 20070101

REACTIONS (14)
  - ACCIDENT [None]
  - CONCUSSION [None]
  - COUGH [None]
  - EXTRASYSTOLES [None]
  - FATIGUE [None]
  - HALLUCINATION, VISUAL [None]
  - JOINT SWELLING [None]
  - LIP SWELLING [None]
  - NAUSEA [None]
  - PAIN IN EXTREMITY [None]
  - PERIORBITAL OEDEMA [None]
  - ROAD TRAFFIC ACCIDENT [None]
  - TOOTH INJURY [None]
  - WHIPLASH INJURY [None]
